FAERS Safety Report 9888186 (Version 3)
Quarter: 2014Q1

REPORT INFORMATION
  Report Type: Spontaneous
  Country: AR (occurrence: AR)
  Receive Date: 20140211
  Receipt Date: 20140212
  Transmission Date: 20141002
  Serious: Yes (Other)
  Sender: FDA-Public Use
  Company Number: AR-PFIZER INC-2013326404

PATIENT
  Age: 58 Year
  Sex: Female

DRUGS (7)
  1. AZULFIDINE [Suspect]
     Indication: ARTHRITIS
     Dosage: 500 MG, 1X/DAY
     Route: 048
     Dates: start: 201301, end: 2013
  2. AZULFIDINE [Suspect]
     Dosage: 500 MG, 2X/DAY
     Route: 048
     Dates: start: 2013, end: 2013
  3. AZULFIDINE [Suspect]
     Dosage: 500 MG, 3X/DAY
     Route: 048
     Dates: start: 2013, end: 2013
  4. AZULFIDINE [Suspect]
     Dosage: 500 MG, 4X/DAY
     Route: 048
     Dates: start: 2013, end: 201306
  5. T4 [Concomitant]
     Indication: HYPOTHYROIDISM
     Dosage: 100 UG, 3X/WEEK
     Route: 048
  6. T4 [Concomitant]
     Dosage: 75 UG, 4X/WEEK
     Route: 048
  7. T4 [Concomitant]
     Dosage: 125 UG, 1X/DAY
     Route: 048
     Dates: start: 2013

REACTIONS (4)
  - Hypothyroidism [Recovering/Resolving]
  - Oropharyngeal pain [Recovered/Resolved]
  - Dysphonia [Not Recovered/Not Resolved]
  - Drug hypersensitivity [Recovered/Resolved]
